FAERS Safety Report 4352256-1 (Version None)
Quarter: 2004Q2

REPORT INFORMATION
  Report Type: 
  Country: None (occurrence: None)
  Receive Date: 20040503
  Receipt Date: 20040416
  Transmission Date: 20050107
  Serious: Yes (Hospitalization)
  Sender: FDA-Public Use
  Company Number: UK072904

PATIENT
  Age: 55 Year
  Sex: Female

DRUGS (3)
  1. NEULASTA [Suspect]
     Indication: CHEMOTHERAPY
     Dosage: 6 MG, 1 IN 1 DAYS, SC
     Route: 058
     Dates: start: 20040331, end: 20040331
  2. DOCETAXEL [Concomitant]
  3. PREDNISONE [Concomitant]

REACTIONS (2)
  - ERYTHEMA [None]
  - INFECTION [None]
